FAERS Safety Report 23564053 (Version 1)
Quarter: 2024Q1

REPORT INFORMATION
  Report Type: Spontaneous
  Country: US (occurrence: US)
  Receive Date: 20240226
  Receipt Date: 20240226
  Transmission Date: 20240410
  Serious: No
  Sender: FDA-Public Use
  Company Number: US-009507513-2402USA005805

PATIENT
  Age: 48 Year
  Sex: Female

DRUGS (1)
  1. CUBICIN [Suspect]
     Active Substance: DAPTOMYCIN
     Indication: Osteomyelitis chronic
     Dosage: SIX?WEEK REGIMEN, IV
     Route: 042

REACTIONS (1)
  - Product use in unapproved indication [Unknown]
